FAERS Safety Report 9296639 (Version 1)
Quarter: 2013Q2

REPORT INFORMATION
  Report Type: Spontaneous
  Country: US (occurrence: None)
  Receive Date: 20130515
  Receipt Date: 20130515
  Transmission Date: 20140414
  Serious: Yes (Hospitalization)
  Sender: FDA-Public Use
  Company Number: NSR_01129_2013

PATIENT
  Age: 68 Year
  Sex: Female

DRUGS (3)
  1. ALLOPURINOL [Suspect]
     Indication: PRODUCT USED FOR UNKNOWN INDICATION
  2. CORTICOSTEROID NOS [Suspect]
     Indication: PRODUCT USED FOR UNKNOWN INDICATION
  3. MYCOPHENOLATE MOFETIL [Suspect]
     Indication: HYPERGLYCAEMIA
     Dosage: DF

REACTIONS (8)
  - Dyspnoea [None]
  - Pyrexia [None]
  - Cough [None]
  - Asthenia [None]
  - Diarrhoea [None]
  - Stevens-Johnson syndrome [None]
  - Hyperglycaemia [None]
  - Pneumatosis intestinalis [None]
